FAERS Safety Report 4795264-9 (Version None)
Quarter: 2005Q4

REPORT INFORMATION
  Report Type: 
  Country: None (occurrence: None)
  Receive Date: 20051012
  Receipt Date: 20050909
  Transmission Date: 20060501
  Serious: Yes (Other)
  Sender: FDA-Public Use
  Company Number: 200513246EU

PATIENT
  Age: 78 Year
  Sex: Male

DRUGS (10)
  1. LASIX [Suspect]
     Indication: DRUG USE FOR UNKNOWN INDICATION
     Dates: end: 20050101
  2. DILTIAZEM EXTENDED-REALEASE CAPSULES [Suspect]
     Indication: HYPERTENSION
     Dates: end: 20050801
  3. TIKOSYN [Suspect]
     Indication: ATRIAL FIBRILLATION
  4. ANTIVERT [Suspect]
     Indication: DIZZINESS
     Dates: start: 20050801
  5. ALDACTONE [Suspect]
     Indication: DRUG USE FOR UNKNOWN INDICATION
  6. ADVAIR DISKUS 100/50 [Concomitant]
  7. PREDNISONE [Concomitant]
  8. PROTONIX [Concomitant]
  9. SPIRIVA [Concomitant]
     Route: 055
  10. ZOCOR [Concomitant]

REACTIONS (4)
  - HYPOTENSION [None]
  - HYPOTHERMIA [None]
  - INFLUENZA LIKE ILLNESS [None]
  - RENAL FAILURE [None]
